FAERS Safety Report 8548587-1 (Version None)
Quarter: 2012Q2

REPORT INFORMATION
  Report Type: 
  Country: None (occurrence: None)
  Receive Date: 20120416
  Receipt Date: 20110621
  Transmission Date: 20120825
  Serious: Yes (Other)
  Sender: FDA-Public Use
  Company Number: PHHY2011US39999

PATIENT
  Age: 77 Year
  Sex: Female

DRUGS (13)
  1. NEXIUM (ESOMEPRZOLE MAGNESIUM) [Concomitant]
  2. ELEXAPRO (ELEXAPRO) [Concomitant]
  3. VITAMIN D [Concomitant]
  4. ADVAIR HFA [Concomitant]
  5. DIOVAN [Suspect]
     Dosage: 160 MG, ONCE DAILY, ORAL
     Route: 048
  6. ABUTEROL (ABUTEROL) [Concomitant]
  7. SPIRIVA [Concomitant]
  8. SIMVASTATIN [Concomitant]
  9. ALENDRONATE SODIUM [Concomitant]
  10. METFFORMIN HYDROCHLORIDE [Concomitant]
  11. LEVOTHYROXINE SODIUM [Concomitant]
  12. FISH OIL (FISH OIL) [Concomitant]
  13. LORAZEPAM [Concomitant]

REACTIONS (1)
  - BLOOD PRESSURE INCREASED [None]
